FAERS Safety Report 8276552-0 (Version None)
Quarter: 2012Q2

REPORT INFORMATION
  Report Type: 
  Country: None (occurrence: None)
  Receive Date: 20120406
  Receipt Date: 20120328
  Transmission Date: 20120825
  Serious: Yes (Hospitalization, Other)
  Sender: FDA-Public Use
  Company Number: 2012SP017225

PATIENT
  Age: 44 Year
  Sex: Male

DRUGS (6)
  1. REMERON [Suspect]
     Indication: DEPRESSION
     Dosage: 15 MG;QD;PO ; 30 MG;QD;PO ; 45 MG;QD;PO
     Route: 048
     Dates: start: 20110730
  2. REMERON [Suspect]
     Indication: DEPRESSION
     Dosage: 15 MG;QD;PO ; 30 MG;QD;PO ; 45 MG;QD;PO
     Route: 048
     Dates: start: 20111105
  3. REMERON [Suspect]
     Indication: DEPRESSION
     Dosage: 15 MG;QD;PO ; 30 MG;QD;PO ; 45 MG;QD;PO
     Route: 048
     Dates: start: 20111117, end: 20120130
  4. LONASEN (BLONANSERIN) [Concomitant]
  5. LENDORMIN [Concomitant]
  6. ROHYPNOL [Concomitant]

REACTIONS (5)
  - GAIT DISTURBANCE [None]
  - PANCREATITIS ACUTE [None]
  - ARTHRITIS [None]
  - RHABDOMYOLYSIS [None]
  - ENTEROCOLITIS [None]
